FAERS Safety Report 5212449-8 (Version None)
Quarter: 2007Q1

REPORT INFORMATION
  Report Type: 
  Country: None (occurrence: None)
  Receive Date: 20070118
  Receipt Date: 20070109
  Transmission Date: 20070707
  Serious: Yes (Other)
  Sender: FDA-Public Use
  Company Number: DE-PFIZER INC-2006114010

PATIENT
  Sex: Female
  Weight: 65 kg

DRUGS (4)
  1. CABASERIL [Suspect]
     Indication: PARKINSON'S DISEASE
     Route: 048
  2. ATACAND HCT [Concomitant]
     Route: 048
  3. MADOPAR [Concomitant]
     Route: 048
     Dates: start: 20030101
  4. SELEGAM [Concomitant]
     Route: 048
     Dates: start: 20030101

REACTIONS (1)
  - AORTIC VALVE INCOMPETENCE [None]
